FAERS Safety Report 5106098-X (Version None)
Quarter: 2006Q3

REPORT INFORMATION
  Report Type: 
  Country: None (occurrence: None)
  Receive Date: 20060912
  Receipt Date: 20060829
  Transmission Date: 20061208
  Serious: Yes (Other)
  Sender: FDA-Public Use
  Company Number: 2006SP000414

PATIENT
  Age: 53 Year
  Sex: Female

DRUGS (9)
  1. PEG-INTRON [Suspect]
     Indication: HEPATITIS C
     Dosage: SC
     Route: 058
     Dates: start: 20060419
  2. RIBAVIRIN [Suspect]
     Indication: HEPATITIS C
     Dosage: PO
     Route: 048
     Dates: start: 20060419
  3. ATENOLOL [Concomitant]
  4. ASPIRIN [Concomitant]
  5. DIOVAN HYDROCHLORIDE [Concomitant]
  6. GLUCOPHAGE [Concomitant]
  7. LEXAPRO [Concomitant]
  8. MULTIVITAMIN/MINERAL FORMULA [Concomitant]
  9. VITAMIN E [Concomitant]

REACTIONS (17)
  - ANGER [None]
  - ANXIETY [None]
  - ASTHENIA [None]
  - DENTAL CARIES [None]
  - DEPRESSION [None]
  - FATIGUE [None]
  - FORMICATION [None]
  - HEPATIC PAIN [None]
  - HYPERTENSION [None]
  - INITIAL INSOMNIA [None]
  - IRRITABILITY [None]
  - MUSCLE ATROPHY [None]
  - MUSCLE DISORDER [None]
  - ORAL INTAKE REDUCED [None]
  - PAIN [None]
  - TOOTH LOSS [None]
  - WEIGHT DECREASED [None]
